FAERS Safety Report 7459327-1 (Version None)
Quarter: 2011Q2

REPORT INFORMATION
  Report Type: 
  Country: None (occurrence: None)
  Receive Date: 20110505
  Receipt Date: 20110429
  Transmission Date: 20111010
  Serious: No
  Sender: FDA-Public Use
  Company Number: US-PFIZER INC-2011093144

PATIENT
  Sex: Female
  Weight: 51.701 kg

DRUGS (1)
  1. PRISTIQ [Suspect]
     Indication: OBSESSIVE-COMPULSIVE DISORDER
     Dosage: 50 MG, 1X/DAY
     Route: 048
     Dates: start: 20110412

REACTIONS (3)
  - HEADACHE [None]
  - OFF LABEL USE [None]
  - SEXUAL DYSFUNCTION [None]
